FAERS Safety Report 7639368-1 (Version None)
Quarter: 2011Q3

REPORT INFORMATION
  Report Type: 
  Country: None (occurrence: None)
  Receive Date: 20110727
  Receipt Date: 20110726
  Transmission Date: 20111222
  Serious: Yes (Hospitalization)
  Sender: FDA-Public Use
  Company Number: US-BRISTOL-MYERS SQUIBB COMPANY-15925605

PATIENT
  Age: 65 Year
  Sex: Male
  Weight: 64 kg

DRUGS (2)
  1. CARBOPLATIN [Suspect]
     Indication: NON-SMALL CELL LUNG CANCER
     Dosage: LAST DOSE ON 06JUL2011
     Route: 042
     Dates: start: 20110601
  2. TAXOL [Suspect]
     Indication: NON-SMALL CELL LUNG CANCER
     Dosage: LAST DOSE ON 06JUL2011.DOSE REDUCED FROM 77MG TO 72MG
     Route: 042
     Dates: start: 20110601

REACTIONS (7)
  - FATIGUE [None]
  - DECREASED APPETITE [None]
  - DEHYDRATION [None]
  - OESOPHAGITIS [None]
  - DYSPHAGIA [None]
  - WEIGHT DECREASED [None]
  - DYSGEUSIA [None]
